FAERS Safety Report 6970795-1 (Version None)
Quarter: 2010Q3

REPORT INFORMATION
  Report Type: 
  Country: None (occurrence: None)
  Receive Date: 20100908
  Receipt Date: 20100901
  Transmission Date: 20110219
  Serious: Yes (Death, Hospitalization)
  Sender: FDA-Public Use
  Company Number: A0878947A

PATIENT
  Age: 57 Year
  Sex: Female

DRUGS (3)
  1. PROMACTA [Suspect]
     Dosage: 1TAB SINGLE DOSE
     Route: 048
     Dates: start: 20100828
  2. UNKNOWN [Concomitant]
  3. HYDROCODONE [Concomitant]

REACTIONS (5)
  - CARDIAC ARREST [None]
  - DEATH [None]
  - DEPRESSED LEVEL OF CONSCIOUSNESS [None]
  - GASTRIC HAEMORRHAGE [None]
  - HEART RATE DECREASED [None]
